FAERS Safety Report 9371548 (Version 1)
Quarter: 2013Q2

REPORT INFORMATION
  Report Type: Spontaneous
  Country: US (occurrence: US)
  Receive Date: 20130627
  Receipt Date: 20130627
  Transmission Date: 20140414
  Serious: Yes (Other)
  Sender: FDA-Public Use
  Company Number: US-ASTELLAS-2013US006633

PATIENT
  Sex: Female

DRUGS (2)
  1. PROGRAF [Suspect]
     Indication: LIVER TRANSPLANT
     Dosage: 0.2 MG/KG, UID/QD
     Route: 065
  2. PROGRAF [Suspect]
     Dosage: 0.13 MG/KG, UID/QD
     Route: 065
     Dates: end: 201009

REACTIONS (4)
  - Gastrointestinal disorder [Recovering/Resolving]
  - Failure to thrive [Recovered/Resolved]
  - Nephropathy toxic [Unknown]
  - Food allergy [Recovering/Resolving]
